FAERS Safety Report 25462441 (Version 1)
Quarter: 2025Q2

REPORT INFORMATION
  Report Type: Spontaneous
  Country: US (occurrence: None)
  Receive Date: 20250619
  Receipt Date: 20250619
  Transmission Date: 20250716
  Serious: No
  Sender: FDA-CTU
  Company Number: None

PATIENT
  Age: 5 Year
  Sex: Female
  Weight: 22.5 kg

DRUGS (1)
  1. SPF 70 KIDS SUNSCREEN [Suspect]
     Active Substance: AVOBENZONE\HOMOSALATE\OCTISALATE\OCTOCRYLENE
     Indication: Prophylaxis against solar radiation
     Dates: start: 20250619, end: 20250619

REACTIONS (2)
  - Application site burn [None]
  - Application site pain [None]

NARRATIVE: CASE EVENT DATE: 20250619
